FAERS Safety Report 21341548 (Version 3)
Quarter: 2023Q2

REPORT INFORMATION
  Report Type: Spontaneous
  Country: DE (occurrence: DE)
  Receive Date: 20220916
  Receipt Date: 20230417
  Transmission Date: 20230721
  Serious: Yes (Hospitalization)
  Sender: FDA-Public Use
  Company Number: DE-NOVARTISPH-NVSC2022DE204863

PATIENT
  Age: 22 Year
  Sex: Female

DRUGS (3)
  1. OLANZAPINE [Suspect]
     Active Substance: OLANZAPINE
     Indication: Product used for unknown indication
     Dosage: 1.25 MG, QD (0-0-1)
     Route: 065
  2. OLANZAPINE [Suspect]
     Active Substance: OLANZAPINE
     Dosage: 15 MG, 0.5 DAY (5-0-10)
     Route: 065
  3. CHOLECALCIFEROL [Concomitant]
     Active Substance: CHOLECALCIFEROL
     Indication: Product used for unknown indication
     Dosage: 20000 IU
     Route: 065

REACTIONS (11)
  - Schizophrenia [Recovered/Resolved]
  - Nasopharyngitis [Recovered/Resolved]
  - Depression [Recovered/Resolved]
  - Performance status decreased [Recovering/Resolving]
  - Oropharyngeal pain [Recovered/Resolved]
  - Depressed mood [Not Recovered/Not Resolved]
  - Throat clearing [Recovered/Resolved]
  - Fatigue [Recovered/Resolved]
  - Headache [Recovered/Resolved]
  - Pyrexia [Recovered/Resolved]
  - Fatigue [Recovered/Resolved]

NARRATIVE: CASE EVENT DATE: 20190116
